FAERS Safety Report 7220928-7 (Version None)
Quarter: 2011Q1

REPORT INFORMATION
  Report Type: 
  Country: None (occurrence: None)
  Receive Date: 20110112
  Receipt Date: 20110103
  Transmission Date: 20110831
  Serious: Yes (Hospitalization)
  Sender: FDA-Public Use
  Company Number: US-ELI_LILLY_AND_COMPANY-US201008006674

PATIENT
  Sex: Male

DRUGS (4)
  1. FORTEO [Suspect]
     Dosage: 20 UG, DAILY (1/D)
  2. COREG [Concomitant]
  3. FORTEO [Suspect]
     Indication: OSTEOPOROSIS
     Dosage: 20 UG, DAILY (1/D)
     Dates: start: 20100811
  4. FUROSEMIDE [Interacting]
     Dosage: UNK, UNKNOWN

REACTIONS (6)
  - DRUG INTERACTION [None]
  - COLONOSCOPY [None]
  - POLYP COLORECTAL [None]
  - CONSTIPATION [None]
  - BLOOD CALCIUM INCREASED [None]
  - CARDIAC FAILURE CONGESTIVE [None]
